FAERS Safety Report 10149981 (Version 1)
Quarter: 2014Q2

REPORT INFORMATION
  Report Type: Spontaneous
  Country: US (occurrence: None)
  Receive Date: 20140501
  Receipt Date: 20140501
  Transmission Date: 20141212
  Serious: Yes (Life-Threatening, Hospitalization)
  Sender: FDA-Public Use
  Company Number: None

PATIENT
  Age: 76 Year
  Sex: Male
  Weight: 79.38 kg

DRUGS (1)
  1. OXALIPLATIN [Suspect]

REACTIONS (1)
  - Immune thrombocytopenic purpura [None]
